FAERS Safety Report 6755235-X (Version None)
Quarter: 2010Q2

REPORT INFORMATION
  Report Type: 
  Country: None (occurrence: None)
  Receive Date: 20100604
  Receipt Date: 20100525
  Transmission Date: 20101027
  Serious: No
  Sender: FDA-Public Use
  Company Number: US-BIOGENIDEC-2010BI017994

PATIENT
  Sex: Female

DRUGS (1)
  1. TYSABRI [Suspect]
     Indication: MULTIPLE SCLEROSIS
     Route: 042
     Dates: start: 20080903

REACTIONS (9)
  - ARTHRALGIA [None]
  - CONTUSION [None]
  - EYE INFLAMMATION [None]
  - INCREASED UPPER AIRWAY SECRETION [None]
  - LIBIDO DECREASED [None]
  - MUSCLE SPASMS [None]
  - NASOPHARYNGITIS [None]
  - PRODUCTIVE COUGH [None]
  - SLUGGISHNESS [None]
